FAERS Safety Report 21238769 (Version 2)
Quarter: 2023Q4

REPORT INFORMATION
  Report Type: Spontaneous
  Country: CA (occurrence: CA)
  Receive Date: 20220822
  Receipt Date: 20231128
  Transmission Date: 20240110
  Serious: Yes (Hospitalization, Other)
  Sender: FDA-Public Use
  Company Number: CA-Covis Pharma Europe B.V.-2022COV02498

PATIENT
  Sex: Female

DRUGS (26)
  1. ALVESCO [Suspect]
     Active Substance: CICLESONIDE
     Route: 065
  2. LEVOFLOXACIN [Suspect]
     Active Substance: LEVOFLOXACIN
  3. ASPIRIN [Suspect]
     Active Substance: ASPIRIN
  4. BUDESONIDE\FORMOTEROL FUMARATE [Suspect]
     Active Substance: BUDESONIDE\FORMOTEROL FUMARATE
  5. DEXAMETHASONE [Suspect]
     Active Substance: DEXAMETHASONE
  6. PREDNISONE [Suspect]
     Active Substance: PREDNISONE
  7. PULMICORT TURBUHALER [Suspect]
     Active Substance: BUDESONIDE
  8. ALBUTEROL [Suspect]
     Active Substance: ALBUTEROL
  9. ALBUTEROL [Suspect]
     Active Substance: ALBUTEROL
  10. ALBUTEROL [Suspect]
     Active Substance: ALBUTEROL
  11. BREO ELLIPTA [Suspect]
     Active Substance: FLUTICASONE FUROATE\VILANTEROL TRIFENATATE
  12. BREO ELLIPTA [Suspect]
     Active Substance: FLUTICASONE FUROATE\VILANTEROL TRIFENATATE
  13. BREO ELLIPTA [Suspect]
     Active Substance: FLUTICASONE FUROATE\VILANTEROL TRIFENATATE
  14. BREO ELLIPTA [Suspect]
     Active Substance: FLUTICASONE FUROATE\VILANTEROL TRIFENATATE
  15. GLYCOPYRROLATE [Suspect]
     Active Substance: GLYCOPYRROLATE
  16. GLYCOPYRROLATE [Suspect]
     Active Substance: GLYCOPYRROLATE
  17. GLYCOPYRROLATE [Suspect]
     Active Substance: GLYCOPYRROLATE
  18. GLYCOPYRROLATE [Suspect]
     Active Substance: GLYCOPYRROLATE
  19. NASONEX [Suspect]
     Active Substance: MOMETASONE FUROATE
  20. NASONEX [Suspect]
     Active Substance: MOMETASONE FUROATE
  21. NASONEX [Suspect]
     Active Substance: MOMETASONE FUROATE
  22. NASONEX [Suspect]
     Active Substance: MOMETASONE FUROATE
  23. SINGULAIR [Suspect]
     Active Substance: MONTELUKAST SODIUM
  24. SINGULAIR [Suspect]
     Active Substance: MONTELUKAST SODIUM
  25. SINGULAIR [Suspect]
     Active Substance: MONTELUKAST SODIUM
  26. SINGULAIR [Suspect]
     Active Substance: MONTELUKAST SODIUM

REACTIONS (18)
  - Asthma [Unknown]
  - Full blood count abnormal [Unknown]
  - Loss of personal independence in daily activities [Unknown]
  - Sleep disorder due to a general medical condition [Unknown]
  - Drug hypersensitivity [Unknown]
  - Therapeutic product effect incomplete [Unknown]
  - Wheezing [Unknown]
  - Dyspnoea [Unknown]
  - Lung disorder [Unknown]
  - Ocular hyperaemia [Unknown]
  - Nasal polyps [Unknown]
  - Ecchymosis [Unknown]
  - Bronchopulmonary aspergillosis [Unknown]
  - Bronchial wall thickening [Unknown]
  - Chest discomfort [Unknown]
  - Neuropathy peripheral [Unknown]
  - Pain in extremity [Unknown]
  - Paraesthesia [Unknown]
